FAERS Safety Report 25538222 (Version 1)
Quarter: 2025Q3

REPORT INFORMATION
  Report Type: Spontaneous
  Country: US (occurrence: US)
  Receive Date: 20250710
  Receipt Date: 20250710
  Transmission Date: 20251020
  Serious: Yes (Other)
  Sender: RADIUS PHARM
  Company Number: US-RADIUS HEALTH INC.-US-RADIUS-25050089

PATIENT
  Age: 67 Year
  Sex: Female

DRUGS (23)
  1. TYMLOS [Suspect]
     Active Substance: ABALOPARATIDE
     Indication: Crohn^s disease
     Dosage: 80 MICROGRAM, QD
     Route: 058
     Dates: start: 202505
  2. BACLOFEN [Concomitant]
     Active Substance: BACLOFEN
     Indication: Product used for unknown indication
  3. BUPRENORPHINE [Concomitant]
     Active Substance: BUPRENORPHINE
     Indication: Product used for unknown indication
  4. CALCITONIN [Concomitant]
     Active Substance: CALCITONIN
     Indication: Product used for unknown indication
  5. CALCIUM [Concomitant]
     Active Substance: CALCIUM
     Indication: Product used for unknown indication
  6. CRANBERRY PLUS 30000 [Concomitant]
     Indication: Product used for unknown indication
  7. ELIQUIS [Concomitant]
     Active Substance: APIXABAN
     Indication: Product used for unknown indication
  8. FISH OIL [Concomitant]
     Active Substance: FISH OIL
     Indication: Product used for unknown indication
  9. GABAPENTIN [Concomitant]
     Active Substance: GABAPENTIN
     Indication: Product used for unknown indication
  10. LISINOPRIL [Concomitant]
     Active Substance: LISINOPRIL
     Indication: Product used for unknown indication
  11. MAGNESIUM [Concomitant]
     Active Substance: MAGNESIUM
     Indication: Product used for unknown indication
  12. MELATONIN [Concomitant]
     Active Substance: MELATONIN
     Indication: Product used for unknown indication
  13. METFORMIN HYDROCHLORIDE [Concomitant]
     Active Substance: METFORMIN HYDROCHLORIDE
     Indication: Product used for unknown indication
  14. VITAMINS NOS [Concomitant]
     Active Substance: VITAMINS
     Indication: Product used for unknown indication
  15. OCUVITE EYE HEALTH [Concomitant]
     Indication: Product used for unknown indication
  16. ONDANSETRON [Concomitant]
     Active Substance: ONDANSETRON
     Indication: Product used for unknown indication
  17. PANTOPRAZOLE [Concomitant]
     Active Substance: PANTOPRAZOLE
     Indication: Product used for unknown indication
  18. POTASSIUM [Concomitant]
     Active Substance: POTASSIUM
     Indication: Product used for unknown indication
  19. ROSUVASTATIN [Concomitant]
     Active Substance: ROSUVASTATIN
     Indication: Product used for unknown indication
  20. TYLENOL [Concomitant]
     Active Substance: ACETAMINOPHEN
     Indication: Product used for unknown indication
  21. VITAMIN B12 [Concomitant]
     Active Substance: CYANOCOBALAMIN
     Indication: Product used for unknown indication
  22. PREDNISONE [Concomitant]
     Active Substance: PREDNISONE
     Indication: Product used for unknown indication
  23. SKYRIZI [Concomitant]
     Active Substance: RISANKIZUMAB-RZAA
     Indication: Product used for unknown indication

REACTIONS (3)
  - Crohn^s disease [Unknown]
  - Dyspnoea [Unknown]
  - Product use in unapproved indication [Unknown]

NARRATIVE: CASE EVENT DATE: 20250531
